FAERS Safety Report 25341852 (Version 1)
Quarter: 2025Q2

REPORT INFORMATION
  Report Type: Other
  Country: ES (occurrence: ES)
  Receive Date: 20250521
  Receipt Date: 20250521
  Transmission Date: 20250716
  Serious: Yes (Death, Hospitalization, Other)
  Sender: APPCO PHARMA LLC
  Company Number: ES-Appco Pharma LLC-2177194

PATIENT
  Age: 65 Year
  Sex: Female

DRUGS (7)
  1. HYDROXYCHLOROQUINE SULFATE [Suspect]
     Active Substance: HYDROXYCHLOROQUINE SULFATE
     Indication: Scleroderma-like reaction
  2. AMIODARONE HYDROCHLORIDE [Suspect]
     Active Substance: AMIODARONE HYDROCHLORIDE
  3. HYDROCHLOROTHIAZIDE [Concomitant]
     Active Substance: HYDROCHLOROTHIAZIDE
  4. BISOPROLOL FUMARATE [Concomitant]
     Active Substance: BISOPROLOL FUMARATE
  5. ACENOCOUMAROL [Concomitant]
     Active Substance: ACENOCOUMAROL
  6. SIMVASTATIN [Concomitant]
     Active Substance: SIMVASTATIN
  7. LOSARTAN [Concomitant]
     Active Substance: LOSARTAN

REACTIONS (2)
  - Renal phospholipidosis [Fatal]
  - Interstitial lung disease [Fatal]
